FAERS Safety Report 4362394-5 (Version None)
Quarter: 2004Q2

REPORT INFORMATION
  Report Type: 
  Country: None (occurrence: None)
  Receive Date: 20040521
  Receipt Date: 20040513
  Transmission Date: 20050107
  Serious: Yes (Death)
  Sender: FDA-Public Use
  Company Number: US-JNJFOC-20040503261

PATIENT
  Age: 79 Year
  Sex: Female

DRUGS (12)
  1. RISPERDAL [Suspect]
     Route: 049
  2. PRILOSEC [Concomitant]
  3. ASPIRIN [Concomitant]
  4. ACTONEL [Concomitant]
  5. LOPRESSOR [Concomitant]
  6. PAXIL [Concomitant]
  7. DYAZIDE [Concomitant]
  8. DYAZIDE [Concomitant]
  9. DEPAKOTE [Concomitant]
  10. BEXTRA [Concomitant]
  11. NORVASC [Concomitant]
  12. XANAX [Concomitant]

REACTIONS (1)
  - LUNG NEOPLASM MALIGNANT [None]
